FAERS Safety Report 18961601 (Version 11)
Quarter: 2023Q1

REPORT INFORMATION
  Report Type: Report from Study
  Country: CN (occurrence: None)
  Receive Date: 20210302
  Receipt Date: 20230217
  Transmission Date: 20230417
  Serious: Yes (Life-Threatening)
  Sender: FDA-Public Use
  Company Number: CN-ROCHE-2772422

PATIENT
  Age: 37 Year
  Sex: Female
  Weight: 70 kg

DRUGS (7)
  1. ATEZOLIZUMAB [Suspect]
     Active Substance: ATEZOLIZUMAB
     Indication: Triple negative breast cancer
     Dosage: ON 03/FEB/2021, RECEIVED MOST RECENT DOSE OF 1200 MG ATEZOLIZUMAB (IV), ONCE IN 3 WEEKS
     Route: 041
     Dates: start: 20210203
  2. CARBOPLATIN [Suspect]
     Active Substance: CARBOPLATIN
     Indication: Triple negative breast cancer
     Dosage: TARGET AREA UNDER THE CURVE (AUC) 2 MG/ML/MIN, ON DAYS 1 AND 8 OF EACH 3-WEEK TREATMENT CYCLE?ON 09/
     Route: 042
     Dates: start: 20210203
  3. GEMCITABINE [Suspect]
     Active Substance: GEMCITABINE
     Indication: Triple negative breast cancer
     Dosage: DAYS 1 AND 8 OF EACH 3-WEEK TREATMENT CYCLE?ON 09/FEB/2021, RECEIVED MOST RECENT DOSE OF GEMCITABINE
     Route: 042
     Dates: start: 20210203
  4. PALONOSETRON HYDROCHLORIDE [Concomitant]
     Active Substance: PALONOSETRON HYDROCHLORIDE
     Indication: Prophylaxis
     Dates: start: 20210203, end: 20210203
  5. PALONOSETRON HYDROCHLORIDE [Concomitant]
     Active Substance: PALONOSETRON HYDROCHLORIDE
     Dates: start: 20210209, end: 20210209
  6. DEXAMETHASONE [Concomitant]
     Active Substance: DEXAMETHASONE
     Indication: Premedication
     Dates: start: 20210209, end: 20210209
  7. METOCLOPRAMIDE DIHYDROCHLORIDE [Concomitant]
     Dates: start: 20210209, end: 20210209

REACTIONS (1)
  - Platelet count decreased [Recovered/Resolved]

NARRATIVE: CASE EVENT DATE: 20210215
